FAERS Safety Report 8436464-6 (Version None)
Quarter: 2012Q2

REPORT INFORMATION
  Report Type: 
  Country: None (occurrence: None)
  Receive Date: 20120614
  Receipt Date: 20120605
  Transmission Date: 20120825
  Serious: Yes (Other)
  Sender: FDA-Public Use
  Company Number: US-ASTRAZENECA-2012SE22198

PATIENT
  Age: 65 Year
  Sex: Female

DRUGS (13)
  1. COUMADIN [Concomitant]
     Indication: ATRIAL FIBRILLATION
     Route: 048
  2. FENTANYL [Concomitant]
     Indication: PAIN
     Route: 050
  3. PRAVASTATIN SODIUM [Concomitant]
     Indication: BLOOD CHOLESTEROL INCREASED
     Route: 048
  4. PROCHLORPERAZINE MALEATE [Concomitant]
     Route: 048
  5. HUMULIN N [Concomitant]
     Route: 058
  6. LANTUS [Concomitant]
     Indication: DIABETES MELLITUS
     Route: 058
  7. CAPRELSA [Suspect]
     Indication: THYROID CANCER
     Route: 048
     Dates: start: 20120321
  8. MORPHINE SULPHATE CR [Concomitant]
     Indication: PAIN
     Route: 048
  9. PROMETHAZINE HCL [Concomitant]
     Indication: NAUSEA
     Route: 048
  10. LISINOPRIL [Concomitant]
     Indication: HYPERTENSION
     Route: 048
  11. MARINOL [Concomitant]
     Indication: PAIN
     Route: 048
  12. SYNTHROID [Concomitant]
     Indication: HYPOTHYROIDISM
     Route: 048
  13. DILTIAZEM [Concomitant]
     Indication: ATRIAL FIBRILLATION

REACTIONS (3)
  - RASH [None]
  - TUMOUR MARKER INCREASED [None]
  - DIARRHOEA [None]
